FAERS Safety Report 17081942 (Version 1)
Quarter: 2019Q4

REPORT INFORMATION
  Report Type: Spontaneous
  Country: US (occurrence: US)
  Receive Date: 20191030
  Receipt Date: 20191030
  Transmission Date: 20200122
  Serious: No
  Sender: FDA-Public Use
  Company Number: None

PATIENT
  Sex: Female

DRUGS (1)
  1. LORBRENA [Suspect]
     Active Substance: LORLATINIB
     Route: 048
     Dates: start: 20190530

REACTIONS (5)
  - Blood electrolytes decreased [None]
  - Hot flush [None]
  - Blood potassium decreased [None]
  - Blood cholesterol increased [None]
  - Blood glucose increased [None]
